FAERS Safety Report 8155069-8 (Version None)
Quarter: 2012Q1

REPORT INFORMATION
  Report Type: 
  Country: None (occurrence: None)
  Receive Date: 20120221
  Receipt Date: 20120215
  Transmission Date: 20120608
  Serious: No
  Sender: FDA-Public Use
  Company Number: US-PFIZER INC-2012042292

PATIENT
  Age: 17 Year
  Sex: Female
  Weight: 77.1 kg

DRUGS (2)
  1. NORGESTREL AND ETHINYL ESTRADIOL [Suspect]
     Indication: OFF LABEL USE
     Dosage: UNK
     Dates: start: 20110901
  2. NORGESTREL AND ETHINYL ESTRADIOL [Suspect]
     Indication: VON WILLEBRAND'S DISEASE

REACTIONS (4)
  - METRORRHAGIA [None]
  - DYSMENORRHOEA [None]
  - INAPPROPRIATE SCHEDULE OF DRUG ADMINISTRATION [None]
  - ACNE [None]
